FAERS Safety Report 7293980-0 (Version None)
Quarter: 2011Q1

REPORT INFORMATION
  Report Type: 
  Country: None (occurrence: None)
  Receive Date: 20110203
  Receipt Date: 20110118
  Transmission Date: 20110831
  Serious: Yes (Hospitalization, Other)
  Sender: FDA-Public Use
  Company Number: 025759

PATIENT
  Sex: Female

DRUGS (1)
  1. LEVETIRACETAM [Suspect]
     Indication: EPILEPSY
     Dosage: 800 MG QD ORAL
     Route: 048
     Dates: start: 20090109, end: 20091014

REACTIONS (3)
  - MONOPLEGIA [None]
  - SPEECH DISORDER [None]
  - CONVULSION [None]
